FAERS Safety Report 5848145-3 (Version None)
Quarter: 2008Q3

REPORT INFORMATION
  Report Type: 
  Country: None (occurrence: None)
  Receive Date: 20080818
  Receipt Date: 20080807
  Transmission Date: 20090109
  Serious: Yes (Disabling, Congenital Anomaly)
  Sender: FDA-Public Use
  Company Number: A0731158A

PATIENT
  Sex: Female
  Weight: 3.1 kg

DRUGS (3)
  1. LAMICTAL [Suspect]
     Indication: EPILEPSY
  2. FOLIC ACID [Concomitant]
     Dosage: 1MG PER DAY
     Dates: start: 20030101
  3. MULTI-VITAMIN [Concomitant]
     Dosage: 1TAB PER DAY
     Dates: start: 20030101

REACTIONS (7)
  - ARNOLD-CHIARI MALFORMATION [None]
  - BRAIN MALFORMATION [None]
  - CONGENITAL EYE DISORDER [None]
  - DEVELOPMENTAL DELAY [None]
  - DRUG EXPOSURE DURING PREGNANCY [None]
  - DRUG EXPOSURE VIA BREAST MILK [None]
  - STRABISMUS [None]
